FAERS Safety Report 16861623 (Version 2)
Quarter: 2019Q4

REPORT INFORMATION
  Report Type: Report from Study
  Country: US (occurrence: US)
  Receive Date: 20190927
  Receipt Date: 20191107
  Transmission Date: 20200122
  Serious: Yes (Hospitalization)
  Sender: FDA-Public Use
  Company Number: US-TAKEDA-2019TUS047530

PATIENT
  Sex: Male
  Weight: 98.87 kg

DRUGS (1)
  1. BORTEZOMIB. [Suspect]
     Active Substance: BORTEZOMIB
     Indication: PLASMA CELL MYELOMA
     Dosage: 3 MILLIGRAM, 1/WEEK
     Route: 058
     Dates: end: 20191031

REACTIONS (15)
  - Asthenia [Unknown]
  - Chronic kidney disease [Unknown]
  - Nausea [Unknown]
  - Lactic acidosis [Unknown]
  - Vomiting [Unknown]
  - Fatigue [Unknown]
  - Urinary tract infection [Unknown]
  - Malaise [Unknown]
  - Hyperglycaemia [Unknown]
  - Dehydration [Unknown]
  - Vitamin D deficiency [Unknown]
  - Ketonuria [Unknown]
  - Hyperkalaemia [Unknown]
  - Diarrhoea [Unknown]
  - Diabetic ketoacidosis [Unknown]
